FAERS Safety Report 22370782 (Version 1)
Quarter: 2023Q2

REPORT INFORMATION
  Report Type: Spontaneous
  Country: NL (occurrence: NL)
  Receive Date: 20230526
  Receipt Date: 20230526
  Transmission Date: 20230721
  Serious: Yes (Disabling)
  Sender: FDA-Public Use
  Company Number: None

PATIENT
  Sex: Male
  Weight: 102 kg

DRUGS (7)
  1. CLOZAPINE [Suspect]
     Active Substance: CLOZAPINE
     Indication: Psychotic disorder
     Dosage: 250 MILLIGRAM DAILY; BRAND NAME NOT SPECIFIED, SO 1DD5 50MG IS 250MG
     Route: 065
     Dates: start: 20230214
  2. ZOPICLONE [Concomitant]
     Active Substance: ZOPICLONE
     Indication: Product used for unknown indication
     Dosage: 7,5 MG (MILLIGRAM),  BRAND NAME NOT SPECIFIED
  3. AMISULPRIDE [Concomitant]
     Active Substance: AMISULPRIDE
     Indication: Product used for unknown indication
     Dosage: 200 MG (MILLIGRAM), BRAND NAME NOT SPECIFIED
  4. CALCIUM /COLECALC [Concomitant]
     Indication: Product used for unknown indication
     Dosage: 400 MG (MILLIGRAMS)/200 UNITS,  STRENGTH : 400MG/200IE / BRAND NAME NOT SPECIFIED
  5. LORAZEPAM [Concomitant]
     Active Substance: LORAZEPAM
     Indication: Product used for unknown indication
     Dosage: 1 MG (MILLIGRAM), BRAND NAME NOT SPECIFIED
  6. FOLIC ACID [Concomitant]
     Active Substance: FOLIC ACID
     Indication: Product used for unknown indication
     Dosage: 0,5 MG (MILLIGRAM), BRAND NAME NOT SPECIFIED
  7. ESOMEPRAZOLE [Concomitant]
     Active Substance: ESOMEPRAZOLE
     Indication: Product used for unknown indication
     Dosage: 40 MG (MILLIGRAM), ESOMEPRAZOL TABLET MSR 40MG / BRAND NAME NOT SPECIFIED

REACTIONS (1)
  - Pain [Not Recovered/Not Resolved]
